FAERS Safety Report 6201911-7 (Version None)
Quarter: 2009Q2

REPORT INFORMATION
  Report Type: 
  Country: None (occurrence: None)
  Receive Date: 20090526
  Receipt Date: 20090518
  Transmission Date: 20091009
  Serious: Yes (Other)
  Sender: FDA-Public Use
  Company Number: PHHY2009BR14476

PATIENT
  Age: 54 Year
  Sex: Female
  Weight: 49 kg

DRUGS (2)
  1. FORASEQ [Suspect]
     Indication: CHRONIC OBSTRUCTIVE PULMONARY DISEASE
     Dosage: UNK
     Dates: start: 20080601
  2. SPIRIVA [Concomitant]
     Indication: CHRONIC OBSTRUCTIVE PULMONARY DISEASE
     Dosage: UNK
     Dates: start: 20090503

REACTIONS (8)
  - ABASIA [None]
  - APHONIA [None]
  - COUGH [None]
  - DAYDREAMING [None]
  - DEAFNESS [None]
  - DISTURBANCE IN ATTENTION [None]
  - DYSPNOEA [None]
  - TREATMENT NONCOMPLIANCE [None]
